FAERS Safety Report 7479043-X (Version None)
Quarter: 2011Q2

REPORT INFORMATION
  Report Type: 
  Country: None (occurrence: None)
  Receive Date: 20110513
  Receipt Date: 20110512
  Transmission Date: 20111010
  Serious: Yes (Hospitalization, Other)
  Sender: FDA-Public Use
  Company Number: PHFR2011GB03016

PATIENT
  Sex: Male
  Weight: 65 kg

DRUGS (2)
  1. DAPTOMYCIN [Suspect]
     Indication: ENDOCARDITIS
     Dosage: 420 MG, QD
     Route: 042
     Dates: start: 20100714, end: 20100801
  2. RIFAMPICIN [Suspect]
     Indication: ENDOCARDITIS
     Dosage: 1.2 G, QD
     Route: 048
     Dates: start: 20100626, end: 20100714

REACTIONS (3)
  - EOSINOPHILIA [None]
  - DYSPNOEA [None]
  - PNEUMONITIS [None]
